FAERS Safety Report 9278171 (Version 3)
Quarter: 2013Q2

REPORT INFORMATION
  Report Type: Report from Study
  Country: CA (occurrence: CA)
  Receive Date: 20130508
  Receipt Date: 20130518
  Transmission Date: 20140414
  Serious: Yes (Other)
  Sender: FDA-Public Use
  Company Number: CA-ROCHE-1170362

PATIENT
  Sex: Female
  Weight: 100 kg

DRUGS (7)
  1. AVASTIN [Suspect]
     Indication: MALIGNANT GLIOMA
     Route: 042
     Dates: start: 20121105
  2. AVASTIN [Suspect]
     Route: 042
     Dates: start: 20121212, end: 20130416
  3. TRILEPTAL [Concomitant]
  4. EPIVAL [Concomitant]
  5. DIVALPROEX [Concomitant]
  6. CARBAMAZEPINE [Concomitant]
  7. TAMOXIFEN [Concomitant]

REACTIONS (2)
  - Disease progression [Unknown]
  - Blood pressure increased [Not Recovered/Not Resolved]
